FAERS Safety Report 7745712-7 (Version None)
Quarter: 2011Q3

REPORT INFORMATION
  Report Type: 
  Country: None (occurrence: None)
  Receive Date: 20110913
  Receipt Date: 20110905
  Transmission Date: 20111222
  Serious: Yes (Hospitalization)
  Sender: FDA-Public Use
  Company Number: FR-KINGPHARMUSA00001-K201101029

PATIENT
  Age: 55 Year
  Sex: Female

DRUGS (4)
  1. CIPROFLOXACIN [Suspect]
     Indication: LUNG DISORDER
     Dosage: UNK
  2. ALTACE [Suspect]
     Indication: MYOCARDIAL ISCHAEMIA
     Dosage: UNK
     Route: 048
     Dates: end: 20110307
  3. NEBIVOLOL HCL [Suspect]
     Indication: MYOCARDIAL ISCHAEMIA
     Dosage: UNK
     Route: 048
     Dates: end: 20110307
  4. FUROSEMIDE [Suspect]
     Indication: MYOCARDIAL ISCHAEMIA
     Dosage: UNK
     Route: 048
     Dates: end: 20110307

REACTIONS (4)
  - RENAL FAILURE ACUTE [None]
  - DEHYDRATION [None]
  - DYSPHAGIA [None]
  - ORAL FUNGAL INFECTION [None]
